FAERS Safety Report 5510512-5 (Version None)
Quarter: 2007Q4

REPORT INFORMATION
  Report Type: 
  Country: None (occurrence: None)
  Receive Date: 20071108
  Receipt Date: 20071029
  Transmission Date: 20080405
  Serious: Yes (Hospitalization, Other)
  Sender: FDA-Public Use
  Company Number: US-SHR-US-2007-034201

PATIENT
  Age: 41 Year
  Sex: Female

DRUGS (1)
  1. BETASERON [Suspect]
     Indication: RELAPSING-REMITTING MULTIPLE SCLEROSIS
     Dosage: 8 MIU, EVERY 2D
     Route: 058
     Dates: start: 20070717, end: 20071001

REACTIONS (6)
  - DIABETES INSIPIDUS [None]
  - ERYTHEMA [None]
  - MASS [None]
  - PITUITARY TUMOUR [None]
  - POST PROCEDURAL COMPLICATION [None]
  - PROCEDURAL HEADACHE [None]
